FAERS Safety Report 9172786 (Version 4)
Quarter: 2013Q4

REPORT INFORMATION
  Report Type: Spontaneous
  Country: US (occurrence: US)
  Receive Date: 20130319
  Receipt Date: 20131114
  Transmission Date: 20140711
  Serious: Yes (Hospitalization, Other)
  Sender: FDA-Public Use
  Company Number: US-009507513-1303USA008148

PATIENT
  Sex: Female
  Weight: 91 kg

DRUGS (5)
  1. FOSAMAX [Suspect]
     Indication: OSTEOPENIA
     Dosage: 70 MG, WEEKLY
     Route: 048
     Dates: start: 200411, end: 200712
  2. ADVAIR [Concomitant]
     Indication: ASTHMA
     Dosage: UNK
     Dates: start: 2000
  3. ALLEGRA [Concomitant]
     Indication: HYPERSENSITIVITY
     Dosage: UNK
     Dates: start: 2003, end: 2004
  4. ZYRTEC [Concomitant]
     Indication: HYPERSENSITIVITY
     Dosage: UNK
     Dates: start: 200404, end: 2009
  5. PRILOSEC [Concomitant]
     Indication: GASTROOESOPHAGEAL REFLUX DISEASE
     Dosage: UNK
     Dates: start: 2002

REACTIONS (51)
  - Intramedullary rod insertion [Recovered/Resolved]
  - Haemodynamic instability [Recovered/Resolved]
  - Pulmonary embolism [Recovered/Resolved]
  - Bone graft [Unknown]
  - Bone graft [Unknown]
  - Post procedural haematoma [Recovered/Resolved]
  - Right ventricular dysfunction [Recovered/Resolved]
  - Respiratory failure [Unknown]
  - Rotator cuff repair [Unknown]
  - Electrocardiogram ST-T segment abnormal [Recovered/Resolved]
  - Syncope [Recovered/Resolved]
  - Coma [Recovered/Resolved]
  - Femur fracture [Recovering/Resolving]
  - Infection [Unknown]
  - Periodontal operation [Unknown]
  - Blood cholesterol increased [Unknown]
  - Arthritis [Unknown]
  - Osteoporosis [Unknown]
  - Procedural hypotension [Unknown]
  - Fluid overload [Recovered/Resolved]
  - Bundle branch block right [Unknown]
  - Atelectasis [Unknown]
  - Renal tubular necrosis [Unknown]
  - Pneumonia [Unknown]
  - Hypernatraemia [Unknown]
  - Klebsiella bacteraemia [Unknown]
  - Hepatic enzyme increased [Unknown]
  - Culture stool positive [Unknown]
  - Left atrial dilatation [Unknown]
  - Aortic valve sclerosis [Unknown]
  - Aortic valve incompetence [Unknown]
  - Mitral valve incompetence [Unknown]
  - Calcium deficiency [Unknown]
  - Vitamin D deficiency [Unknown]
  - Hypercalcaemia [Recovered/Resolved]
  - Hiatus hernia [Unknown]
  - Barrett^s oesophagus [Unknown]
  - Spinal compression fracture [Unknown]
  - Spinal osteoarthritis [Unknown]
  - Scoliosis [Unknown]
  - Osteomalacia [Unknown]
  - Ventricular extrasystoles [Unknown]
  - Benign neoplasm of thyroid gland [Unknown]
  - Cardiac failure congestive [Unknown]
  - Insomnia [Unknown]
  - Varicose vein [Unknown]
  - QRS axis abnormal [Unknown]
  - Heart rate decreased [Unknown]
  - Oedema peripheral [Unknown]
  - Vomiting [Unknown]
  - Nausea [Unknown]
